FAERS Safety Report 4595525-2 (Version None)
Quarter: 2005Q1

REPORT INFORMATION
  Report Type: 
  Country: None (occurrence: None)
  Receive Date: 20050228
  Receipt Date: 20050228
  Transmission Date: 20050727
  Serious: Yes (Other)
  Sender: FDA-Public Use
  Company Number: None

PATIENT
  Sex: Male

DRUGS (3)
  1. OMEPRAZOLE [Suspect]
     Indication: GASTROOESOPHAGEAL REFLUX DISEASE
     Dosage: 1 QD
     Dates: start: 20050105, end: 20050205
  2. LOVASTATIN [Concomitant]
  3. ENALAPRIL [Concomitant]

REACTIONS (3)
  - CHEST DISCOMFORT [None]
  - DRUG EFFECT DECREASED [None]
  - LIMB DISCOMFORT [None]
